FAERS Safety Report 5321138-0 (Version None)
Quarter: 2007Q2

REPORT INFORMATION
  Report Type: 
  Country: None (occurrence: None)
  Receive Date: 20070510
  Receipt Date: 20070503
  Transmission Date: 20071010
  Serious: Yes (Other)
  Sender: FDA-Public Use
  Company Number: US-BAYER-200710123BWH

PATIENT
  Age: 53 Year
  Sex: Female
  Weight: 67 kg

DRUGS (10)
  1. AVELOX [Suspect]
     Indication: BRONCHITIS
     Route: 048
     Dates: start: 20070105, end: 20070105
  2. ZESTRIL [Concomitant]
     Dosage: AS USED: 10 MG
     Route: 048
  3. PLAVIX [Concomitant]
     Dosage: AS USED: 75 MG
     Route: 048
  4. LEXAPRO [Concomitant]
     Dosage: AS USED: 20 MG
     Route: 048
  5. ROBITUSSIN AC [Concomitant]
  6. ASPIRIN [Concomitant]
     Dosage: AS USED: 325 MG
     Route: 048
  7. LIPITOR [Concomitant]
  8. COREG [Concomitant]
  9. ZETIA [Concomitant]
  10. ECUTRIM [Concomitant]
     Dates: start: 20040816

REACTIONS (6)
  - BLOOD PRESSURE DECREASED [None]
  - FALL [None]
  - HYPOTENSION [None]
  - LOSS OF CONSCIOUSNESS [None]
  - PULSE ABSENT [None]
  - VOMITING [None]
